FAERS Safety Report 6756512-9 (Version None)
Quarter: 2010Q2

REPORT INFORMATION
  Report Type: 
  Country: None (occurrence: None)
  Receive Date: 20100604
  Receipt Date: 20100527
  Transmission Date: 20101027
  Serious: Yes (Other)
  Sender: FDA-Public Use
  Company Number: B0657414A

PATIENT
  Age: 55 Year
  Sex: Female

DRUGS (1)
  1. CLENIL MODULITE [Suspect]
     Route: 055

REACTIONS (1)
  - COUGH [None]
